FAERS Safety Report 6076526-4 (Version None)
Quarter: 2009Q1

REPORT INFORMATION
  Report Type: 
  Country: None (occurrence: None)
  Receive Date: 20090209
  Receipt Date: 20090128
  Transmission Date: 20090719
  Serious: Yes (Hospitalization)
  Sender: FDA-Public Use
  Company Number: DSJ-2009-01189

PATIENT
  Age: 81 Year
  Sex: Female

DRUGS (9)
  1. OLMESARTAN MEDOXOMIL [Suspect]
     Indication: HYPERTENSION
     Dosage: 20 MG, PER ORAL
     Route: 048
     Dates: start: 20080820
  2. ASPIRIN [Concomitant]
  3. TAKEPRON OD (LANSOPRAZOLE) (LANSOPRAZOLE) [Concomitant]
  4. ACTOS [Concomitant]
  5. AMARYL [Concomitant]
  6. NORVASC [Concomitant]
  7. KINEDAK (EPALRESTAT) (EPALRESTAT) [Concomitant]
  8. MEVALOTIN (PRAVASTATIN SODIUM) (PRAVASTATIN SODIUM) [Concomitant]
  9. FLUITRAN (TRICHLORMETHIAZIDE) (TRICHLORMETHIAZIDE) [Concomitant]

REACTIONS (3)
  - ATRIAL FIBRILLATION [None]
  - BLOOD POTASSIUM INCREASED [None]
  - GENERALISED OEDEMA [None]
